FAERS Safety Report 19037501 (Version 1)
Quarter: 2021Q1

REPORT INFORMATION
  Report Type: Spontaneous
  Country: US (occurrence: US)
  Receive Date: 20210319
  Receipt Date: 20210319
  Transmission Date: 20210420
  Serious: Yes (Life-Threatening, Hospitalization, Other)
  Sender: FDA-Public Use
  Company Number: None

PATIENT
  Age: 4 Year
  Sex: Male
  Weight: 17.7 kg

DRUGS (5)
  1. FEBRILE NEUTROPENIA [Concomitant]
  2. THROMBOSIS OF RIGHT INTERNAL JUGUALR VEIN [Concomitant]
  3. RIGHT RENAL MASS [Concomitant]
  4. CRIZOTINIB [Suspect]
     Active Substance: CRIZOTINIB
     Indication: NEUROBLASTOMA
     Route: 048
     Dates: start: 20210209, end: 20210301
  5. PANCYTOPENIA [Concomitant]

REACTIONS (4)
  - Fungal tracheitis [None]
  - Oesophagitis [None]
  - Neutropenia [None]
  - Mucosal inflammation [None]

NARRATIVE: CASE EVENT DATE: 20210228
